FAERS Safety Report 6055245-4 (Version None)
Quarter: 2009Q1

REPORT INFORMATION
  Report Type: 
  Country: None (occurrence: None)
  Receive Date: 20090123
  Receipt Date: 20090111
  Transmission Date: 20090719
  Serious: Yes (Other)
  Sender: FDA-Public Use
  Company Number: 144065

PATIENT
  Age: 53 Year

DRUGS (11)
  1. VINCRISTINE SULFATE [Suspect]
     Indication: HODGKIN'S DISEASE
  2. MECHLORETHAMINE [Suspect]
     Indication: HODGKIN'S DISEASE
  3. PROCARBAZINE [Suspect]
     Indication: HODGKIN'S DISEASE
  4. PREDNISONE [Suspect]
     Indication: HODGKIN'S DISEASE
  5. DOXORUBICIN HCL [Concomitant]
     Indication: HODGKIN'S DISEASE
  6. BLEOMYCIN SULFATE [Suspect]
     Indication: PSEUDOLYMPHOMA
  7. IFOSFAMIDE [Suspect]
     Indication: HODGKIN'S DISEASE
  8. CARBOPLATIN [Suspect]
     Indication: HODGKIN'S DISEASE
  9. ETOPOSIDE [Suspect]
     Indication: HODGKIN'S DISEASE
  10. THERAPEUTICAL RADIOPHARMACEUTICALS [Suspect]
     Indication: HODGKIN'S DISEASE
     Dosage: 20.0 GY, SACRUM 20.0 GY
  11. CYCLOPHOSPHAMIDE [Suspect]
     Indication: HODGKIN'S DISEASE

REACTIONS (2)
  - ACUTE MYELOID LEUKAEMIA [None]
  - MYELODYSPLASTIC SYNDROME [None]
